FAERS Safety Report 19617899 (Version 1)
Quarter: 2021Q3

REPORT INFORMATION
  Report Type: Spontaneous
  Country: JP (occurrence: JP)
  Receive Date: 20210727
  Receipt Date: 20210727
  Transmission Date: 20211014
  Serious: Yes (Death, Hospitalization, Other)
  Sender: FDA-Public Use
  Company Number: JP-BRISTOL-MYERS SQUIBB COMPANY-BMS-2021-073133

PATIENT
  Age: 81 Year
  Sex: Male
  Weight: 66.9 kg

DRUGS (3)
  1. OPDIVO [Suspect]
     Active Substance: NIVOLUMAB
     Indication: GASTRIC CANCER
     Dosage: 240 MG
     Route: 041
     Dates: start: 20200729, end: 20200813
  2. URSODEOXYCHOLIC ACID [Suspect]
     Active Substance: URSODIOL
     Indication: PRODUCT USED FOR UNKNOWN INDICATION
     Dosage: 600 MG, EVERYDAY
     Route: 065
     Dates: start: 20200902
  3. URSODEOXYCHOLIC ACID [Suspect]
     Active Substance: URSODIOL
     Dosage: 20 MILLIGRAM
     Route: 065
     Dates: start: 20200924

REACTIONS (9)
  - Colitis [Recovering/Resolving]
  - Tumour haemorrhage [Unknown]
  - Interstitial lung disease [Unknown]
  - Malaise [Unknown]
  - Autoimmune hepatitis [Recovered/Resolved]
  - Metastases to liver [Unknown]
  - Delirium [Unknown]
  - Malignant ascites [Fatal]
  - Renal impairment [Recovering/Resolving]

NARRATIVE: CASE EVENT DATE: 20200829
